FAERS Safety Report 7212642-9 (Version None)
Quarter: 2011Q1

REPORT INFORMATION
  Report Type: 
  Country: None (occurrence: None)
  Receive Date: 20110106
  Receipt Date: 20101229
  Transmission Date: 20110831
  Serious: No
  Sender: FDA-Public Use
  Company Number: US-PFIZER INC-2010181750

PATIENT
  Age: 63 Year
  Sex: Female

DRUGS (4)
  1. LISINOPRIL [Suspect]
     Dosage: UNK
  2. ACTOS [Suspect]
  3. HYDROCHLOROTHIAZIDE [Suspect]
     Dosage: UNK
  4. LIPITOR [Suspect]
     Dosage: ONCE DAILY

REACTIONS (1)
  - MYALGIA [None]
